FAERS Safety Report 4844015-8 (Version None)
Quarter: 2005Q4

REPORT INFORMATION
  Report Type: 
  Country: None (occurrence: None)
  Receive Date: 20051130
  Receipt Date: 20051130
  Transmission Date: 20060501
  Serious: Yes (Hospitalization)
  Sender: FDA-Public Use
  Company Number: None

PATIENT
  Age: 88 Year
  Sex: Female
  Weight: 55.7924 kg

DRUGS (2)
  1. LEVOFLOXACIN [Suspect]
     Indication: URINARY TRACT INFECTION
     Dosage: 500 MG DAILY IV DRIP
     Route: 041
     Dates: start: 20051119, end: 20051121
  2. LEVOFLOXACIN [Suspect]
     Dosage: 500 MG DAILY PO
     Route: 048
     Dates: start: 20051118, end: 20051119

REACTIONS (5)
  - HYPOTENSION [None]
  - SEPSIS [None]
  - TACHYCARDIA [None]
  - THROMBOCYTOPENIA [None]
  - URINARY TRACT INFECTION [None]
